FAERS Safety Report 10008534 (Version 5)
Quarter: 2015Q1

REPORT INFORMATION
  Report Type: Spontaneous
  Country: US (occurrence: US)
  Receive Date: 20140313
  Receipt Date: 20150225
  Transmission Date: 20150720
  Serious: Yes (Hospitalization, Disabling, Other)
  Sender: FDA-Public Use
  Company Number: US-009507513-1403USA004521

PATIENT
  Sex: Female
  Weight: 69.39 kg

DRUGS (4)
  1. FOSAMAX [Suspect]
     Active Substance: ALENDRONATE SODIUM
     Indication: OSTEOPENIA
     Dosage: 10 MG, QD
     Route: 048
     Dates: start: 19980715, end: 2002
  2. FOSAMAX [Suspect]
     Active Substance: ALENDRONATE SODIUM
     Dosage: 70 MG, QW
     Route: 048
     Dates: start: 20020407, end: 200702
  3. ALENDRONATE SODIUM. [Suspect]
     Active Substance: ALENDRONATE SODIUM
     Indication: OSTEOPENIA
     Dosage: 70 MG, QW
     Route: 048
     Dates: start: 20090814, end: 20100703
  4. BONIVA [Suspect]
     Active Substance: IBANDRONATE SODIUM
     Indication: OSTEOPENIA
     Dosage: 150 MG, QM
     Route: 048
     Dates: start: 20070423, end: 200908

REACTIONS (19)
  - Ankle fracture [Unknown]
  - Vitamin D deficiency [Unknown]
  - Anaemia postoperative [Unknown]
  - Device failure [Unknown]
  - Sleep disorder [Not Recovered/Not Resolved]
  - Bursitis [Unknown]
  - Gastrooesophageal reflux disease [Unknown]
  - Intramedullary rod insertion [Unknown]
  - Fatigue [Not Recovered/Not Resolved]
  - Hypertension [Unknown]
  - Femur fracture [Not Recovered/Not Resolved]
  - Cholecystectomy [Unknown]
  - Depression [Not Recovered/Not Resolved]
  - Femur fracture [Recovered/Resolved]
  - Traumatic arthrosis [Unknown]
  - Sciatic nerve injury [Recovered/Resolved]
  - Osteoporosis [Unknown]
  - Bone fragmentation [Unknown]
  - Hyperlipidaemia [Unknown]

NARRATIVE: CASE EVENT DATE: 1999
